FAERS Safety Report 24969893 (Version 1)
Quarter: 2025Q1

REPORT INFORMATION
  Report Type: Spontaneous
  Country: NL (occurrence: NL)
  Receive Date: 20250214
  Receipt Date: 20250214
  Transmission Date: 20250408
  Serious: Yes (Death)
  Sender: RECORDATI
  Company Number: NL-RECORDATI RARE DISEASE INC.-2024010169

PATIENT

DRUGS (5)
  1. ISTURISA [Suspect]
     Active Substance: OSILODROSTAT PHOSPHATE
     Indication: Cushing^s syndrome
     Dosage: 15 MILLIGRAM, BID
     Dates: start: 20240728, end: 20241108
  2. HEPARIN [Concomitant]
     Active Substance: HEPARIN SODIUM
     Indication: Disease complication
  3. PANTOPRAZOLE SODIUM [Concomitant]
     Active Substance: PANTOPRAZOLE SODIUM
     Indication: Disease complication
  4. FUROSEMIDE [Concomitant]
     Active Substance: FUROSEMIDE
     Indication: Disease complication
  5. INSULIN NOS [Concomitant]
     Active Substance: INSULIN NOS
     Indication: Disease complication

REACTIONS (4)
  - Staphylococcal sepsis [Fatal]
  - Intervertebral discitis [Fatal]
  - COVID-19 [Fatal]
  - Respiratory failure [Fatal]

NARRATIVE: CASE EVENT DATE: 20241028
